FAERS Safety Report 21102686 (Version 2)
Quarter: 2022Q3

REPORT INFORMATION
  Report Type: Report from Study
  Country: US (occurrence: US)
  Receive Date: 20220719
  Receipt Date: 20220905
  Transmission Date: 20221027
  Serious: Yes (Other)
  Sender: FDA-Public Use
  Company Number: US-JNJFOC-20220533998

PATIENT
  Sex: Male

DRUGS (3)
  1. STELARA [Suspect]
     Active Substance: USTEKINUMAB
     Indication: Crohn^s disease
     Route: 058
  2. STELARA [Suspect]
     Active Substance: USTEKINUMAB
     Route: 041
     Dates: start: 20220511
  3. STELARA [Suspect]
     Active Substance: USTEKINUMAB
     Route: 058
     Dates: start: 20220706

REACTIONS (8)
  - Deafness unilateral [Unknown]
  - Crohn^s disease [Not Recovered/Not Resolved]
  - General physical health deterioration [Unknown]
  - Drug ineffective [Unknown]
  - Fatigue [Unknown]
  - Swelling face [Unknown]
  - Frequent bowel movements [Unknown]
  - Burning sensation [Unknown]
